FAERS Safety Report 4883651-X (Version None)
Quarter: 2006Q1

REPORT INFORMATION
  Report Type: 
  Country: None (occurrence: None)
  Receive Date: 20060117
  Receipt Date: 20060117
  Transmission Date: 20060701
  Serious: Yes (Hospitalization, Other)
  Sender: FDA-Public Use
  Company Number: None

PATIENT
  Age: 59 Year
  Sex: Male
  Weight: 88.905 kg

DRUGS (1)
  1. HALDOL [Suspect]
     Indication: AGGRESSION

REACTIONS (2)
  - FLAT AFFECT [None]
  - NEUROLEPTIC MALIGNANT SYNDROME [None]
